FAERS Safety Report 22282949 (Version 1)
Quarter: 2023Q2

REPORT INFORMATION
  Report Type: Spontaneous
  Country: DE (occurrence: DE)
  Receive Date: 20230504
  Receipt Date: 20230504
  Transmission Date: 20230722
  Serious: Yes (Hospitalization)
  Sender: FDA-Public Use
  Company Number: None

PATIENT
  Age: 33 Year
  Sex: Female
  Weight: 52 kg

DRUGS (78)
  1. CIPROFLOXACIN [Suspect]
     Active Substance: CIPROFLOXACIN
     Indication: Infection
     Dosage: 2 SEPARATED DOSES
     Route: 042
     Dates: start: 20011121, end: 20011123
  2. LAMICTAL [Suspect]
     Active Substance: LAMOTRIGINE
     Indication: Epilepsy
     Dosage: 12.5 MG, QD
     Route: 048
     Dates: start: 20011112, end: 20011114
  3. LAMICTAL [Suspect]
     Active Substance: LAMOTRIGINE
     Indication: Epilepsy
  4. FOSFOMYCIN [Suspect]
     Active Substance: FOSFOMYCIN
     Indication: Infection
     Route: 042
     Dates: start: 20011130, end: 20011205
  5. DIFLUCAN [Suspect]
     Active Substance: FLUCONAZOLE
     Indication: Candida infection
     Route: 042
     Dates: start: 20011118, end: 20011120
  6. DIFLUCAN [Suspect]
     Active Substance: FLUCONAZOLE
     Indication: Candida infection
  7. HEPARIN SODIUM [Suspect]
     Active Substance: HEPARIN SODIUM
     Indication: Thrombosis prophylaxis
     Route: 042
     Dates: start: 20011126, end: 20011203
  8. RANITIDINE HYDROCHLORIDE [Suspect]
     Active Substance: RANITIDINE HYDROCHLORIDE
     Indication: Prophylaxis
     Route: 042
     Dates: start: 20011123, end: 20011126
  9. RANITIDINE HYDROCHLORIDE [Suspect]
     Active Substance: RANITIDINE HYDROCHLORIDE
     Indication: Product used for unknown indication
  10. AMINO ACIDS, SOURCE UNSPECIFIED [Suspect]
     Active Substance: AMINO ACIDS, SOURCE UNSPECIFIED
     Indication: Parenteral nutrition
     Route: 042
     Dates: start: 20011124, end: 20011130
  11. FERRLECIT [Suspect]
     Active Substance: SODIUM FERRIC GLUCONATE COMPLEX
     Indication: Iron deficiency
     Dosage: UNIT DOSE=6 AMPULE
     Route: 042
     Dates: start: 20011205, end: 20011205
  12. NADROPARIN CALCIUM [Suspect]
     Active Substance: NADROPARIN CALCIUM
     Indication: Thrombosis prophylaxis
     Route: 058
     Dates: start: 20011117, end: 20011124
  13. NADROPARIN CALCIUM [Suspect]
     Active Substance: NADROPARIN CALCIUM
     Indication: Thrombosis prophylaxis
  14. CLONAZEPAM [Suspect]
     Active Substance: CLONAZEPAM
     Indication: Epilepsy
     Dosage: 1 MG
     Route: 048
     Dates: start: 20011112, end: 20011205
  15. CLONAZEPAM [Suspect]
     Active Substance: CLONAZEPAM
     Indication: Epilepsy
  16. SULFAMETHOXAZOLE\TRIMETHOPRIM [Suspect]
     Active Substance: SULFAMETHOXAZOLE\TRIMETHOPRIM
     Indication: Infection
     Dosage: 2 SEPARATED DOSES
     Route: 042
     Dates: start: 20011116, end: 20011120
  17. SULFAMETHOXAZOLE\TRIMETHOPRIM [Suspect]
     Active Substance: SULFAMETHOXAZOLE\TRIMETHOPRIM
     Indication: Infection
  18. EGG PHOSPHOLIPIDS\GLYCERIN\SOYBEAN OIL [Suspect]
     Active Substance: EGG PHOSPHOLIPIDS\GLYCERIN\SOYBEAN OIL
     Indication: Parenteral nutrition
     Dosage: DAILY, PRN.
     Route: 042
     Dates: start: 20011121, end: 20011205
  19. EGG PHOSPHOLIPIDS\GLYCERIN\SOYBEAN OIL [Suspect]
     Active Substance: EGG PHOSPHOLIPIDS\GLYCERIN\SOYBEAN OIL
     Indication: Product used for unknown indication
  20. LACTULOSE [Suspect]
     Active Substance: LACTULOSE
     Indication: Constipation
     Dosage: 240 ML, QD
     Route: 048
     Dates: start: 20011128, end: 20011205
  21. .BETA.-ACETYLDIGOXIN [Suspect]
     Active Substance: .BETA.-ACETYLDIGOXIN
     Indication: Cardiac failure
     Route: 042
     Dates: start: 20011121, end: 20011202
  22. AMOXICILLIN\CLAVULANIC ACID [Suspect]
     Active Substance: AMOXICILLIN\CLAVULANIC ACID
     Indication: Infection
     Route: 042
     Dates: start: 20011121, end: 20011123
  23. CLONIDINE [Suspect]
     Active Substance: CLONIDINE
     Indication: Hypertension
     Route: 042
     Dates: start: 20011205
  24. TAVOR (LORAZEPAM) [Suspect]
     Active Substance: LORAZEPAM
     Indication: Agitation
     Dosage: 3 SEPARATED DOSES
     Route: 048
     Dates: start: 20011118, end: 20011202
  25. LASIX [Suspect]
     Active Substance: FUROSEMIDE
     Indication: Oedema
     Route: 042
     Dates: end: 20011126
  26. INSULIN NOS [Suspect]
     Active Substance: INSULIN NOS
     Indication: Metabolic disorder
     Route: 042
     Dates: start: 20011124, end: 20011202
  27. URSODIOL [Suspect]
     Active Substance: URSODIOL
     Indication: Cholelithiasis
     Dosage: 3 SEPARATED DOSES
     Route: 048
     Dates: start: 20011123, end: 20011128
  28. THEOPHYLLINE [Suspect]
     Active Substance: THEOPHYLLINE
     Indication: Bronchospasm
     Dosage: DOSE: 6 MG/HR.
     Route: 042
     Dates: start: 20011205
  29. THEOPHYLLINE [Suspect]
     Active Substance: THEOPHYLLINE
     Indication: Bronchospasm
  30. MIDAZOLAM [Suspect]
     Active Substance: MIDAZOLAM
     Indication: Pain
     Route: 042
     Dates: start: 20011113, end: 20011117
  31. VITAMIN B1 [Concomitant]
     Active Substance: THIAMINE HYDROCHLORIDE
     Indication: Vitamin B1 deficiency
     Dosage: DOSE: REPORTED AS 100.
     Route: 042
     Dates: end: 20011126
  32. VITAMIN B1 [Concomitant]
     Active Substance: THIAMINE HYDROCHLORIDE
     Indication: Vitamin B1 deficiency
     Dosage: DOSE: REPORTED AS 100. 2 SEPARATED DOSES
     Route: 042
     Dates: end: 20011126
  33. AKINETON [Concomitant]
     Active Substance: BIPERIDEN HYDROCHLORIDE
     Indication: Extrapyramidal disorder
     Route: 042
     Dates: end: 20011113
  34. AKINETON [Concomitant]
     Active Substance: BIPERIDEN HYDROCHLORIDE
     Indication: Extrapyramidal disorder
     Dosage: 2 SEPARATED DOSES
     Route: 042
     Dates: end: 20011113
  35. DEXTROSE [Concomitant]
     Active Substance: DEXTROSE\DEXTROSE MONOHYDRATE
     Indication: Fluid replacement
     Dosage: DOSE REGIMEN WAS REPORTED AS : 5% AT 2000 ML / DAY, 40% AT 500 ML / DAY AND 70 % AT 2000 ML /DAY.
     Route: 042
     Dates: end: 20011205
  36. DEXTROSE [Concomitant]
     Active Substance: DEXTROSE\DEXTROSE MONOHYDRATE
     Indication: Fluid replacement
     Dosage: DOSE REGIMEN WAS REPORTED AS : 5% AT 2000 ML / DAY, 40% AT 500 ML / DAY AND 70 % AT 2000 ML /DAY.
     Route: 042
     Dates: end: 20011205
  37. ALBUMIN HUMAN [Concomitant]
     Active Substance: ALBUMIN HUMAN
     Indication: Fluid replacement
     Dosage: 100 ML TREATMENT WAS DISCONTINUED ON 16 NOV 2001. 200 ML TREATMENT WAS FROM 21 NOV 2001 TO 24 NOV 2+
     Route: 042
     Dates: end: 20011124
  38. CALCIUM [Concomitant]
     Active Substance: CALCIUM
     Indication: Calcium deficiency
     Dosage: DOSAGE REGIMEN: 26 NOV 2001:10 ML / DAY OF 20% AMPOULE WAS DISCONTINUED.05 DEC 2001: 1 AMPOULE OF+
     Route: 042
  39. CALCIUM [Concomitant]
     Active Substance: CALCIUM
     Indication: Calcium deficiency
     Dosage: DOSAGE REGIMEN: 26 NOV 2001:10 ML / DAY OF 20% AMPOULE WAS DISCONTINUED.05 DEC 2001: 1 AMPOULE OF+
     Route: 042
  40. ENALAPRIL MALEATE [Concomitant]
     Active Substance: ENALAPRIL MALEATE
     Indication: Cardiac failure
     Route: 048
     Dates: end: 20011202
  41. PIRITRAMIDE [Concomitant]
     Active Substance: PIRITRAMIDE
     Indication: Pain
     Dosage: 21 NOV 2001:3 MG, QDS WAS DISCONTINUED.05 DEC 2001: 3 MG, TID, PRN WAS STARTED.
     Route: 042
  42. PIRITRAMIDE [Concomitant]
     Active Substance: PIRITRAMIDE
     Indication: Pain
  43. XYLOMETAZOLINE HYDROCHLORIDE [Concomitant]
     Active Substance: XYLOMETAZOLINE HYDROCHLORIDE
     Indication: Nasopharyngitis
     Dosage: 3 SEPARATED DOSES
     Route: 045
     Dates: end: 20011130
  44. KONAKION [Concomitant]
     Active Substance: PHYTONADIONE
     Indication: Vitamin K deficiency
     Dosage: DOSE WAS ALSO REPORTED AS 2 MG.
     Route: 042
     Dates: end: 20011113
  45. METRONIDAZOLE [Concomitant]
     Active Substance: METRONIDAZOLE
     Indication: Infection
     Route: 042
     Dates: start: 20011115, end: 20011120
  46. NUTRIFLEX [AMINO ACIDS NOS;CARBOHYDRATES NOS;ELECTROLYTES NOS] [Concomitant]
     Indication: Parenteral nutrition
     Route: 042
     Dates: end: 20011123
  47. KETAMIN [KETAMINE] [Concomitant]
     Indication: Pain
     Route: 042
     Dates: start: 20011113, end: 20011117
  48. DIMETHICONE [Concomitant]
     Active Substance: DIMETHICONE
     Indication: Flatulence
     Dosage: 60 DROP
     Route: 048
     Dates: end: 20011120
  49. DIMETHICONE [Concomitant]
     Active Substance: DIMETHICONE
     Indication: Flatulence
     Dosage: 3 SEPARATED DOSES
     Route: 048
     Dates: end: 20011120
  50. BRICANYL [Concomitant]
     Active Substance: TERBUTALINE SULFATE
     Indication: Respiratory tract congestion
     Dosage: FREQUENCY: PRN.
     Route: 042
     Dates: end: 20011112
  51. BRICANYL [Concomitant]
     Active Substance: TERBUTALINE SULFATE
     Indication: Obstructive airways disorder
     Dosage: FREQUENCY: PRN. UNIT DOSE=.5 AMPULE
     Route: 042
     Dates: end: 20011112
  52. VANCOMYCIN [Concomitant]
     Active Substance: VANCOMYCIN
     Indication: Infection
     Dosage: 500 MG
     Route: 042
     Dates: end: 20011113
  53. HEPARIN [Concomitant]
     Active Substance: HEPARIN SODIUM
     Indication: Thrombosis prophylaxis
     Route: 058
     Dates: start: 20011109, end: 20011109
  54. NYSTATIN [Concomitant]
     Active Substance: NYSTATIN
     Indication: Candida infection
     Dosage: FREQUENCY: SEVERAL TIMES A DAY.
     Route: 061
     Dates: end: 20011202
  55. NYSTATIN [Concomitant]
     Active Substance: NYSTATIN
     Indication: Candida infection
     Dosage: FREQUENCY: SEVERAL TIMES A DAY.
     Dates: end: 20011202
  56. SODIUM CHLORIDE [Concomitant]
     Active Substance: SODIUM CHLORIDE
     Indication: Fluid replacement
     Route: 042
     Dates: end: 20011130
  57. SODIUM CHLORIDE [Concomitant]
     Active Substance: SODIUM CHLORIDE
     Indication: Fluid replacement
     Route: 042
     Dates: end: 20011130
  58. NOREPINEPHRINE HYDROCHLORIDE, (+/-)- [Concomitant]
     Active Substance: NOREPINEPHRINE HYDROCHLORIDE, (+/-)-
     Indication: Shock
     Route: 042
     Dates: start: 20011109, end: 20011203
  59. FENTANYL [Concomitant]
     Active Substance: FENTANYL
     Indication: Pain
     Dosage: DOSE WAS ALSO REPORTED AS 1.5 MG. DAILY DOSE=3 AMPULE
     Route: 042
     Dates: start: 20011120, end: 20011120
  60. FENTANYL [Concomitant]
     Active Substance: FENTANYL
     Indication: Pain
  61. IRON [Concomitant]
     Active Substance: IRON
     Indication: Iron deficiency
     Route: 042
     Dates: end: 20011116
  62. IRON [Concomitant]
     Active Substance: IRON
     Indication: Iron deficiency
     Dosage: DAILY DOSE=1 AMPULE
     Route: 042
     Dates: end: 20011116
  63. DECORTIN H [PREDNISOLONE] [Concomitant]
     Indication: Colitis ulcerative
     Route: 042
     Dates: end: 20011205
  64. VITAMIN B COMPLEX [Concomitant]
     Active Substance: CYANOCOBALAMIN\DEXPANTHENOL\NIACINAMIDE\PYRIDOXINE HYDROCHLORIDE\RIBOFLAVIN 5^-PHOSPHATE SODIUM\THIA
     Indication: Vitamin B complex deficiency
     Route: 042
  65. CILASTATIN SODIUM\IMIPENEM [Concomitant]
     Active Substance: CILASTATIN SODIUM\IMIPENEM
     Indication: Infection
     Dosage: 3 SEPARATED DOSES
     Route: 042
     Dates: end: 20011113
  66. VALPROIC ACID [Concomitant]
     Active Substance: VALPROIC ACID
     Indication: Epilepsy
     Dosage: 2 SEPARATED DOSES
     Route: 042
     Dates: end: 20011115
  67. DOBUTAMINE HYDROCHLORIDE [Concomitant]
     Active Substance: DOBUTAMINE HYDROCHLORIDE
     Indication: Cardiac failure
     Dosage: 250 MG
     Route: 042
     Dates: start: 20011121, end: 20011121
  68. DOBUTAMINE HYDROCHLORIDE [Concomitant]
     Active Substance: DOBUTAMINE HYDROCHLORIDE
     Indication: Cardiac failure
  69. VITINTRA [ERGOCALCIFEROL;PHYTOMENADIONE;RETINOL PALMITATE;TOCOPHER [Concomitant]
     Indication: Parenteral nutrition
     Dosage: DOSE: 1 AMPOULE PER DAY, PRN.
     Route: 042
     Dates: start: 20011121, end: 20011205
  70. METOCLOPRAMIDE [Concomitant]
     Active Substance: METOCLOPRAMIDE
     Indication: Nausea
     Route: 042
     Dates: start: 20011113, end: 20011117
  71. METOCLOPRAMIDE [Concomitant]
     Active Substance: METOCLOPRAMIDE
     Indication: Nausea
     Dosage: DAILY DOSE=1 AMPULE
     Route: 042
     Dates: start: 20011113, end: 20011117
  72. POTASSIUM CHLORIDE [Concomitant]
     Active Substance: POTASSIUM CHLORIDE
     Indication: Metabolic disorder
     Route: 042
     Dates: end: 20011117
  73. POTASSIUM CHLORIDE [Concomitant]
     Active Substance: POTASSIUM CHLORIDE
     Indication: Metabolic disorder
     Route: 042
     Dates: end: 20011117
  74. FOLIC ACID\IRON [Concomitant]
     Active Substance: FOLIC ACID\IRON
     Indication: Iron deficiency
     Route: 048
     Dates: end: 20011128
  75. PANTOPRAZOLE [Concomitant]
     Active Substance: PANTOPRAZOLE
     Indication: Prophylaxis against gastrointestinal ulcer
     Route: 042
     Dates: end: 20011121
  76. PROMETHAZINE HYDROCHLORIDE [Concomitant]
     Active Substance: PROMETHAZINE HYDROCHLORIDE
     Indication: Agitation
     Dosage: 6 SEPARATED DOSES
     Route: 042
     Dates: end: 20011111
  77. DECORTIN H [PREDNISOLONE] [Concomitant]
     Indication: Colitis ulcerative
     Route: 042
     Dates: end: 20011205
  78. KETAMINE [Concomitant]
     Active Substance: KETAMINE
     Indication: Pain

REACTIONS (3)
  - Sepsis [Recovered/Resolved]
  - Toxic epidermal necrolysis [Recovered/Resolved]
  - Stevens-Johnson syndrome [Recovered/Resolved]

NARRATIVE: CASE EVENT DATE: 20011128
